FAERS Safety Report 4343821-6 (Version None)
Quarter: 2004Q2

REPORT INFORMATION
  Report Type: 
  Country: None (occurrence: None)
  Receive Date: 20040421
  Receipt Date: 20040421
  Transmission Date: 20050107
  Serious: Yes (Hospitalization)
  Sender: FDA-Public Use
  Company Number: None

PATIENT

DRUGS (4)
  1. METHADONE [Suspect]
     Dosage: 20 MG PO TID
     Route: 048
  2. MORPHINE [Suspect]
  3. FENTANYL [Suspect]
     Dosage: 50 MCG Q72HR
  4. BENADRYL [Suspect]

REACTIONS (6)
  - CONFUSIONAL STATE [None]
  - DELIRIUM [None]
  - DISORIENTATION [None]
  - MENTAL STATUS CHANGES [None]
  - OVERDOSE [None]
  - SEDATION [None]
